FAERS Safety Report 9348136 (Version 1)
Quarter: 2013Q2

REPORT INFORMATION
  Report Type: Spontaneous
  Country: US (occurrence: None)
  Receive Date: 20130612
  Receipt Date: 20130612
  Transmission Date: 20140414
  Serious: No
  Sender: FDA-Public Use
  Company Number: None

PATIENT
  Age: 71 Year
  Sex: Female
  Weight: 79 kg

DRUGS (4)
  1. TEMOZOLOMIDE [Suspect]
     Dosage: TOTAL DOSE 4200 MG
     Dates: end: 20130521
  2. ONDANSETRON [Suspect]
  3. DAPSONE [Concomitant]
  4. DEXAMETHASONE [Concomitant]

REACTIONS (1)
  - Lymphocyte count decreased [None]
